FAERS Safety Report 17422970 (Version 2)
Quarter: 2020Q1

REPORT INFORMATION
  Report Type: Spontaneous
  Country: JP (occurrence: JP)
  Receive Date: 20200216
  Receipt Date: 20200225
  Transmission Date: 20200409
  Serious: Yes (Hospitalization, Other)
  Sender: FDA-Public Use
  Company Number: JP-ALEXION PHARMACEUTICALS INC.-A202001545

PATIENT

DRUGS (1)
  1. SOLIRIS [Suspect]
     Active Substance: ECULIZUMAB
     Indication: ATYPICAL HAEMOLYTIC URAEMIC SYNDROME
     Dosage: 900 MG, QW
     Route: 042
     Dates: start: 20200124, end: 20200216

REACTIONS (8)
  - Generalised oedema [Unknown]
  - Nephrotic syndrome [Not Recovered/Not Resolved]
  - Pulmonary oedema [Unknown]
  - Proteinuria [Not Recovered/Not Resolved]
  - Drug ineffective [Unknown]
  - Abdominal pain [Recovering/Resolving]
  - Pleural effusion [Unknown]
  - Complement factor increased [Unknown]

NARRATIVE: CASE EVENT DATE: 20200203
